FAERS Safety Report 8237713-X (Version None)
Quarter: 2012Q1

REPORT INFORMATION
  Report Type: 
  Country: None (occurrence: None)
  Receive Date: 20120327
  Receipt Date: 20120319
  Transmission Date: 20120608
  Serious: Yes (Hospitalization, Other)
  Sender: FDA-Public Use
  Company Number: US-ACTELION-A-NJ2011-43688

PATIENT

DRUGS (6)
  1. TRACLEER [Suspect]
     Indication: PULMONARY ARTERIAL HYPERTENSION
     Dosage: UNK
     Route: 048
     Dates: start: 20101019
  2. TRACLEER [Suspect]
     Dosage: UNK
     Route: 048
     Dates: start: 20120101
  3. ZAROXOLYN [Concomitant]
  4. LISINOPRIL [Concomitant]
  5. COREG [Concomitant]
  6. COUMADIN [Concomitant]

REACTIONS (8)
  - PANCREATIC NEOPLASM [None]
  - WEIGHT INCREASED [None]
  - GENERALISED OEDEMA [None]
  - PANCYTOPENIA [None]
  - PLEURAL EFFUSION [None]
  - FLUID RETENTION [None]
  - COR PULMONALE [None]
  - DRUG DOSE OMISSION [None]
